FAERS Safety Report 14434450 (Version 1)
Quarter: 2018Q1

REPORT INFORMATION
  Report Type: Report from Study
  Country: US (occurrence: US)
  Receive Date: 20180124
  Receipt Date: 20180124
  Transmission Date: 20180509
  Serious: Yes (Other)
  Sender: FDA-Public Use
  Company Number: US-BAUSCH-BL-2018-001463

PATIENT
  Sex: Male
  Weight: 81.72 kg

DRUGS (2)
  1. XIFAXAN [Suspect]
     Active Substance: RIFAXIMIN
     Indication: LIVER DISORDER
     Dosage: STARTED FOUR YEARS AGO
     Route: 065
  2. XIFAXAN [Suspect]
     Active Substance: RIFAXIMIN
     Dosage: RESTARTED AND YET NOT RAN OUT
     Route: 065

REACTIONS (13)
  - Prostate cancer [Unknown]
  - Gastrointestinal disorder [Unknown]
  - Confusional state [Unknown]
  - Treatment noncompliance [Unknown]
  - Muscle spasms [Not Recovered/Not Resolved]
  - Portal shunt procedure [Unknown]
  - Neurotoxicity [Unknown]
  - Ammonia increased [Unknown]
  - Cerebral disorder [Unknown]
  - Pain [Unknown]
  - Loss of consciousness [Unknown]
  - Feeling abnormal [Unknown]
  - Thermal burn [Recovered/Resolved]
